FAERS Safety Report 21996368 (Version 1)
Quarter: 2023Q1

REPORT INFORMATION
  Report Type: Spontaneous
  Country: US (occurrence: US)
  Receive Date: 20230215
  Receipt Date: 20230215
  Transmission Date: 20230417
  Serious: Yes (Other)
  Sender: FDA-Public Use
  Company Number: US-SEATTLE GENETICS-2023SGN01532

PATIENT
  Age: 50 Year

DRUGS (1)
  1. TUKYSA [Suspect]
     Active Substance: TUCATINIB
     Indication: Breast cancer metastatic
     Route: 065

REACTIONS (3)
  - Malignant neoplasm progression [Unknown]
  - Radiation necrosis [Unknown]
  - Visual impairment [Unknown]
